FAERS Safety Report 5151507-3 (Version None)
Quarter: 2006Q4

REPORT INFORMATION
  Report Type: 
  Country: None (occurrence: None)
  Receive Date: 20061114
  Receipt Date: 20061114
  Transmission Date: 20070319
  Serious: No
  Sender: FDA-Public Use
  Company Number: None

PATIENT
  Sex: Male
  Weight: 81.6475 kg

DRUGS (1)
  1. ACETAMINPHEN    500MG       PERRIGO EQUATE [Suspect]
     Indication: ANALGESIC EFFECT
     Dosage: 500MG  DAILY  PO
     Route: 048
     Dates: start: 20061101, end: 20061108

REACTIONS (2)
  - ABDOMINAL PAIN UPPER [None]
  - PHARMACEUTICAL PRODUCT COMPLAINT [None]
